FAERS Safety Report 6685261-0 (Version None)
Quarter: 2010Q2

REPORT INFORMATION
  Report Type: 
  Country: None (occurrence: None)
  Receive Date: 20100416
  Receipt Date: 20100409
  Transmission Date: 20101027
  Serious: Yes (Hospitalization)
  Sender: FDA-Public Use
  Company Number: DK-ABBOTT-10P-044-0618237-00

PATIENT
  Sex: Female
  Weight: 93 kg

DRUGS (1)
  1. REDUCTIL [Suspect]
     Indication: OVERWEIGHT
     Route: 048
     Dates: start: 20091103, end: 20091202

REACTIONS (1)
  - PANCREATITIS ACUTE [None]
